FAERS Safety Report 4886480-6 (Version None)
Quarter: 2006Q1

REPORT INFORMATION
  Report Type: 
  Country: None (occurrence: None)
  Receive Date: 20060120
  Receipt Date: 20060109
  Transmission Date: 20060701
  Serious: Yes (Death, Hospitalization)
  Sender: FDA-Public Use
  Company Number: US-MERCK-0601USA01246

PATIENT
  Age: 55 Year
  Sex: Male
  Weight: 182 kg

DRUGS (1)
  1. VIOXX [Suspect]
     Indication: ARTHRITIS
     Route: 048
     Dates: start: 19990101, end: 20010101

REACTIONS (4)
  - ACUTE MYOCARDIAL INFARCTION [None]
  - CELLULITIS [None]
  - CORONARY ARTERY DISEASE [None]
  - SLEEP APNOEA SYNDROME [None]
